FAERS Safety Report 9143623 (Version 5)
Quarter: 2013Q3

REPORT INFORMATION
  Report Type: Report from Study
  Country: US (occurrence: US)
  Receive Date: 20130306
  Receipt Date: 20130717
  Transmission Date: 20140515
  Serious: Yes (Hospitalization)
  Sender: FDA-Public Use
  Company Number: US-FRI-1000042999

PATIENT
  Age: 7 Year
  Sex: Male
  Weight: 47.9 kg

DRUGS (8)
  1. MEMANTINE (OPEN-LABEL) [Suspect]
     Indication: AUTISM SPECTRUM DISORDER
     Dosage: 3-9 MG
     Route: 048
     Dates: start: 20121101, end: 20130224
  2. ZOLOFT [Concomitant]
     Indication: DEPRESSION
     Dosage: 50 MG
     Route: 048
     Dates: start: 20120418, end: 20130224
  3. ZOLOFT [Concomitant]
     Dosage: 25 MG
     Route: 048
     Dates: start: 20130225
  4. FOCALIN XR [Concomitant]
     Indication: ATTENTION DEFICIT/HYPERACTIVITY DISORDER
     Dosage: 5 MG
     Route: 048
     Dates: start: 20120418, end: 20130225
  5. CLONIDINE [Concomitant]
     Indication: ATTENTION DEFICIT/HYPERACTIVITY DISORDER
     Dosage: 0.1 MG
     Route: 048
     Dates: start: 20120418
  6. RISPERDAL [Concomitant]
     Indication: AUTISM SPECTRUM DISORDER
     Dosage: 2 MG
     Route: 048
     Dates: start: 20120418, end: 20130302
  7. RISPERDAL [Concomitant]
     Dosage: 0.5 MG
     Route: 048
     Dates: start: 20130303, end: 20130310
  8. TAMIFLU [Concomitant]
     Indication: PHARYNGITIS STREPTOCOCCAL
     Route: 048
     Dates: start: 20121110, end: 20121110

REACTIONS (1)
  - Disinhibition [Recovered/Resolved]
